FAERS Safety Report 16116274 (Version 1)
Quarter: 2019Q1

REPORT INFORMATION
  Report Type: Spontaneous
  Country: CN (occurrence: CN)
  Receive Date: 20190326
  Receipt Date: 20190326
  Transmission Date: 20190418
  Serious: Yes (Hospitalization)
  Sender: FDA-Public Use
  Company Number: CN-BAXTER-2019BAX005548

PATIENT
  Age: 33 Year
  Sex: Female
  Weight: 49 kg

DRUGS (12)
  1. 0.9% SODIUM CHLORIDE INJECTION [Suspect]
     Active Substance: SODIUM CHLORIDE
     Dosage: DOSAGE FORM: INJECTION, THIRD CYCLE OF CAV REGIMEN (XIAIKE) VINDESINE SULFATE FOR INJECTION 4 MG + 0
     Route: 041
     Dates: start: 20190306, end: 20190306
  2. 5% GLUCOSE  INJECTION [Suspect]
     Active Substance: DEXTROSE
     Dosage: DOSAGE FORM: INJECTION, THIRD CYCLE OF CAV REGIMEN, DUOMEISU INJECTION 40 MG + 5% GLUCOSE INJECTION
     Route: 041
     Dates: start: 20190306, end: 20190306
  3. DUOMEISU [Suspect]
     Active Substance: DOXORUBICIN HYDROCHLORIDE
     Indication: NASAL CAVITY CANCER
     Dosage: DOSAGE FORM: LIPOSOME INJECTION, FIRST AND SECOND CYCLE OF CAV REGIMEN, DUOMEISU INJECTION + 5% GLUC
     Route: 041
  4. 5% GLUCOSE  INJECTION [Suspect]
     Active Substance: DEXTROSE
     Indication: MEDICATION DILUTION
     Dosage: DOSAGE FORM: INJECTION, FIRST AND SECOND CYCLE OF CAV REGIMEN, DUOMEISU INJECTION + 5% GLUCOSE INJEC
     Route: 041
  5. XIAIKE [Suspect]
     Active Substance: VINDESINE
     Indication: NASAL CAVITY CANCER
     Dosage: FIRST AND SECOND CYCLE OF CAV REGIMEN, (XIAIKE) VINDESINE SULFATE FOR INJECTION + 0.9% SODIUM CHLORI
     Route: 041
  6. 0.9% SODIUM CHLORIDE INJECTION [Suspect]
     Active Substance: SODIUM CHLORIDE
     Dosage: DOSAGE FORM: INJECTION, FIRST AND SECOND CYCLE OF CAV REGIMEN, (ENDOXAN) CYCLOPHOSPHAMIDE FOR INJECT
     Route: 041
  7. DUOMEISU [Suspect]
     Active Substance: DOXORUBICIN HYDROCHLORIDE
     Dosage: DOSAGE FORM: LIPOSOME INJECTION, THIRD CYCLE OF CAV REGIMEN, DUOMEISU INJECTION + 5% GLUCOSE INJECTI
     Route: 041
     Dates: start: 20190306, end: 20190306
  8. ENDOXAN [Suspect]
     Active Substance: CYCLOPHOSPHAMIDE
     Indication: NASAL CAVITY CANCER
     Dosage: DOSAGE FORM: INJECTION, FIRST AND SECOND CYCLE OF CAV REGIMEN, (ENDOXAN) CYCLOPHOSPHAMIDE FOR INJECT
     Route: 041
  9. ENDOXAN [Suspect]
     Active Substance: CYCLOPHOSPHAMIDE
     Dosage: DOSAGE FORM: INJECTION, THIRD CYCLE OF CAV REGIMEN, (ENDOXAN) CYCLOPHOSPHAMIDE FOR INJECTION 1200 MG
     Route: 041
     Dates: start: 20190306, end: 20190306
  10. 0.9% SODIUM CHLORIDE INJECTION [Suspect]
     Active Substance: SODIUM CHLORIDE
     Indication: MEDICATION DILUTION
     Dosage: DOSAGE FORM: INJECTION, FIRST AND SECOND CYCLE OF CAV REGIMEN, (XIAIKE) VINDESINE SULFATE FOR INJECT
     Route: 041
  11. 0.9% SODIUM CHLORIDE INJECTION [Suspect]
     Active Substance: SODIUM CHLORIDE
     Dosage: DOSAGE FORM: INJECTION, THIRD CYCLE OF CAV REGIMEN, (ENDOXAN) CYCLOPHOSPHAMIDE FOR INJECTION 1200 MG
     Route: 041
     Dates: start: 20190306, end: 20190306
  12. XIAIKE [Suspect]
     Active Substance: VINDESINE
     Dosage: THIRD CYCLE OF CAV REGIMEN, (XIAIKE) VINDESINE SULFATE FOR INJECTION 4 MG + 0.9% SODIUM CHLORIDE INJ
     Route: 041
     Dates: start: 20190306, end: 20190306

REACTIONS (1)
  - Bone marrow failure [Unknown]

NARRATIVE: CASE EVENT DATE: 20190308
